FAERS Safety Report 4464109-9 (Version None)
Quarter: 2004Q4

REPORT INFORMATION
  Report Type: 
  Country: None (occurrence: None)
  Receive Date: 20041001
  Receipt Date: 20040604
  Transmission Date: 20050328
  Serious: Yes (Hospitalization)
  Sender: FDA-Public Use
  Company Number: FR-MERCK-0406FRA00022

PATIENT
  Age: 75 Year
  Sex: Male
  Weight: 66 kg

DRUGS (7)
  1. ACETAMINOPHEN AND PROPOXYPHENE HYDROCHLORIDE [Concomitant]
     Route: 048
  2. FOSAMAX [Suspect]
     Route: 048
     Dates: start: 20031106
  3. CALCIUM CARBONATE AND CHOLECALCIFEROL [Concomitant]
     Route: 048
  4. INFLIXIMAB [Suspect]
     Indication: RHEUMATOID ARTHRITIS
     Route: 048
     Dates: start: 20031002
  5. LEFLUNOMIDE [Suspect]
     Indication: RHEUMATOID ARTHRITIS
     Route: 048
     Dates: start: 20031002, end: 20031205
  6. OMEPRAZOLE [Concomitant]
     Route: 048
  7. PREDNISONE [Concomitant]
     Route: 048

REACTIONS (1)
  - NEUROPATHY PERIPHERAL [None]
